FAERS Safety Report 7888328-4 (Version None)
Quarter: 2011Q4

REPORT INFORMATION
  Report Type: 
  Country: None (occurrence: None)
  Receive Date: 20111103
  Receipt Date: 20111024
  Transmission Date: 20120403
  Serious: Yes (Hospitalization)
  Sender: FDA-Public Use
  Company Number: US-BAYER-2011-027261

PATIENT
  Age: 47 Year
  Sex: Female

DRUGS (7)
  1. ALLEGRA [Concomitant]
     Dosage: 60 MG, UNK
  2. TOPAMAX [Concomitant]
     Dosage: UNK
     Route: 048
     Dates: start: 20000101
  3. YASMIN [Suspect]
     Dosage: UNK
     Route: 048
     Dates: start: 20020101, end: 20020726
  4. SYNTHROID [Concomitant]
     Dosage: UNK
     Route: 048
     Dates: start: 19980101
  5. CIMETIDINE [Concomitant]
     Dosage: 300 MG, QD
  6. ZYRTEC [Concomitant]
     Dosage: 10 MG, HS
  7. BACLOFEN [Concomitant]
     Dosage: 5 MG, TID

REACTIONS (8)
  - INJURY [None]
  - OEDEMA PERIPHERAL [None]
  - LIMB DEFORMITY [None]
  - DEEP VEIN THROMBOSIS [None]
  - DYSPNOEA [None]
  - PAIN [None]
  - PULMONARY EMBOLISM [None]
  - PAIN IN EXTREMITY [None]
